FAERS Safety Report 9914569 (Version 6)
Quarter: 2015Q3

REPORT INFORMATION
  Report Type: Spontaneous
  Country: US (occurrence: US)
  Receive Date: 20140220
  Receipt Date: 20150810
  Transmission Date: 20151125
  Serious: Yes (Hospitalization, Other)
  Sender: FDA-Public Use
  Company Number: US-AMGEN-USASP2014011669

PATIENT
  Age: 69 Year
  Sex: Female

DRUGS (2)
  1. ENBREL [Suspect]
     Active Substance: ETANERCEPT
     Dosage: UNK
     Route: 065
  2. ENBREL [Suspect]
     Active Substance: ETANERCEPT
     Indication: RHEUMATOID ARTHRITIS
     Dosage: 50 MG, QWK
     Route: 065
     Dates: start: 2013

REACTIONS (17)
  - Pancreatitis [Recovered/Resolved]
  - Fatigue [Not Recovered/Not Resolved]
  - Retroperitoneal haemorrhage [Not Recovered/Not Resolved]
  - Bile duct obstruction [Recovered/Resolved]
  - Incorrect product storage [Recovered/Resolved]
  - Bile duct stone [Recovered/Resolved]
  - Malaise [Not Recovered/Not Resolved]
  - Feeling abnormal [Not Recovered/Not Resolved]
  - Drug administration error [Recovered/Resolved]
  - Postoperative abscess [Recovered/Resolved]
  - Postoperative thrombosis [Recovered/Resolved]
  - Vomiting [Recovered/Resolved]
  - Osteoarthritis [Not Recovered/Not Resolved]
  - Cardiac failure [Recovered/Resolved]
  - Rheumatoid arthritis [Not Recovered/Not Resolved]
  - Myocardial infarction [Recovered/Resolved]
  - Abdominal pain [Recovered/Resolved]

NARRATIVE: CASE EVENT DATE: 2013
